FAERS Safety Report 13243454 (Version 1)
Quarter: 2017Q1

REPORT INFORMATION
  Report Type: Spontaneous
  Country: US (occurrence: US)
  Receive Date: 20170216
  Receipt Date: 20170216
  Transmission Date: 20170428
  Serious: No
  Sender: FDA-Public Use
  Company Number: US-MALLINCKRODT-T201600663

PATIENT

DRUGS (2)
  1. INOMAX [Suspect]
     Active Substance: NITRIC OXIDE
     Indication: PRODUCT USED FOR UNKNOWN INDICATION
     Dosage: UNK, CONTINUOUS
     Dates: start: 201602, end: 201602
  2. INOMAX [Suspect]
     Active Substance: NITRIC OXIDE
     Dosage: 20 PPM, CONTINUOUS
     Dates: start: 201602

REACTIONS (2)
  - No adverse event [Unknown]
  - Device issue [Unknown]

NARRATIVE: CASE EVENT DATE: 201602
